FAERS Safety Report 8508567 (Version 4)
Quarter: 2016Q1

REPORT INFORMATION
  Report Type: Spontaneous
  Country: US (occurrence: US)
  Receive Date: 20120412
  Receipt Date: 20160323
  Transmission Date: 20160526
  Serious: Yes (Other)
  Sender: FDA-Public Use
  Company Number: US-ASTRAZENECA-2011SE51331

PATIENT
  Sex: Female

DRUGS (3)
  1. NEXIUM [Suspect]
     Active Substance: ESOMEPRAZOLE MAGNESIUM
     Indication: GASTROOESOPHAGEAL REFLUX DISEASE
     Route: 048
     Dates: start: 20060628
  2. AMOX TR K CLV [Concomitant]
     Active Substance: AMOXICILLIN\CLAVULANATE POTASSIUM
     Dosage: 875-125 MG 1 TABLET  TWICE DAILY FOR 10 DAYS
     Dates: start: 20070220
  3. NEXIUM [Suspect]
     Active Substance: ESOMEPRAZOLE MAGNESIUM
     Indication: GASTROOESOPHAGEAL REFLUX DISEASE
     Route: 048
     Dates: start: 200605, end: 200710

REACTIONS (9)
  - Osteopenia [Unknown]
  - Pain [Unknown]
  - Skeletal injury [Unknown]
  - Body height decreased [Unknown]
  - Osteoporosis [Unknown]
  - Gastrointestinal disorder [Unknown]
  - Foot fracture [Unknown]
  - Hepatic function abnormal [Unknown]
  - Spinal fracture [Unknown]
